FAERS Safety Report 6594227-0 (Version None)
Quarter: 2010Q1

REPORT INFORMATION
  Report Type: 
  Country: None (occurrence: None)
  Receive Date: 20100222
  Receipt Date: 20100216
  Transmission Date: 20100710
  Serious: Yes (Death, Hospitalization, Other)
  Sender: FDA-Public Use
  Company Number: JP-BRISTOL-MYERS SQUIBB COMPANY-14802912

PATIENT
  Age: 79 Year
  Sex: Female
  Weight: 45 kg

DRUGS (17)
  1. SPRYCEL [Suspect]
     Indication: ACUTE LYMPHOCYTIC LEUKAEMIA
     Dosage: 24JUL09-11SEP 120MG/D:12SEP-04NOV09 140MG/D:05NOV-24NOV09 INTER-24NOV09 STARTED:24DEC09 19DEC09
     Route: 048
     Dates: start: 20090724, end: 20091219
  2. VINCRISTINE SULFATE [Suspect]
     Indication: ACUTE LYMPHOCYTIC LEUKAEMIA
     Dosage: INJ 24JUL09,31JUL09,7AUG09 25NOV09,2DEC09
     Route: 042
     Dates: start: 20090724, end: 20091216
  3. DANAPAROID SODIUM [Concomitant]
     Indication: ACUTE LYMPHOCYTIC LEUKAEMIA
     Dosage: INJ 1 DF=2500 V
     Route: 042
     Dates: start: 20090717, end: 20090724
  4. PREDNISOLONE [Concomitant]
     Indication: ACUTE LYMPHOCYTIC LEUKAEMIA
     Dosage: TABS 24JUL09-25JUL09:50MG 26JUL09-27JUL09:30MG 28JUL09-29JUL09:20MG 30JUL09-31JUL09:10MG
     Route: 048
     Dates: start: 20090724, end: 20090731
  5. OLOPATADINE HCL [Concomitant]
     Indication: PROPHYLAXIS
     Dosage: TABS
     Route: 048
     Dates: start: 20090724, end: 20091104
  6. VALSARTAN [Concomitant]
     Dosage: TABS;40MG/DAY FROM 18OCT09. 80MG TILL 17OCT09
     Route: 048
     Dates: end: 20091218
  7. IRSOGLADINE MALEATE [Concomitant]
     Indication: PROPHYLAXIS
     Route: 048
     Dates: end: 20091104
  8. FLUCONAZOLE [Concomitant]
     Indication: PROPHYLAXIS
     Dosage: CAPS
     Route: 048
     Dates: end: 20091010
  9. ALLOPURINOL [Concomitant]
     Dosage: TABS
     Route: 048
     Dates: end: 20091218
  10. SULFAMETHOXAZOLE AND TRIMETHOPRIM [Concomitant]
     Indication: PROPHYLAXIS
     Dosage: 1 DF = 2 TABS
     Route: 048
     Dates: end: 20091218
  11. REBAMIPIDE [Concomitant]
     Indication: PROPHYLAXIS
     Route: 048
     Dates: start: 20091105, end: 20091218
  12. FUROSEMIDE [Concomitant]
     Route: 048
     Dates: start: 20090804
  13. CALCIUM POLYSTYRENE SULFONATE [Concomitant]
     Dosage: 2DF=2PACKS;JELLY.
     Route: 048
     Dates: start: 20090828, end: 20091104
  14. CYCLOPHOSPHAMIDE [Concomitant]
     Indication: ACUTE LYMPHOCYTIC LEUKAEMIA
     Route: 042
     Dates: start: 20091125, end: 20091125
  15. DAUNORUBICIN HCL [Concomitant]
     Indication: ACUTE LYMPHOCYTIC LEUKAEMIA
     Dosage: INJ
     Route: 042
     Dates: start: 20091125, end: 20091127
  16. MAXIPIME [Concomitant]
     Route: 042
     Dates: start: 20091204, end: 20091214
  17. MEROPENEM [Concomitant]
     Dosage: MEROPENEM HYDRATE INJ
     Route: 042
     Dates: start: 20091215, end: 20091219

REACTIONS (11)
  - ANAEMIA [None]
  - ASCITES [None]
  - BLOOD CREATININE INCREASED [None]
  - BLOOD UREA INCREASED [None]
  - GENERALISED OEDEMA [None]
  - HYPERKALAEMIA [None]
  - NEUTROPHIL COUNT DECREASED [None]
  - OEDEMA PERIPHERAL [None]
  - OVARIAN CANCER [None]
  - PLATELET COUNT DECREASED [None]
  - WHITE BLOOD CELL COUNT DECREASED [None]
